FAERS Safety Report 5176335-4 (Version None)
Quarter: 2006Q4

REPORT INFORMATION
  Report Type: 
  Country: None (occurrence: None)
  Receive Date: 20061128
  Receipt Date: 20061115
  Transmission Date: 20070319
  Serious: Yes (Other)
  Sender: FDA-Public Use
  Company Number: 2006BH014627

PATIENT

DRUGS (1)
  1. TISSEEL VH KIT [Suspect]
     Indication: NERVOUS SYSTEM SURGERY
     Dosage: 5 ML

REACTIONS (2)
  - ANAPHYLACTIC REACTION [None]
  - HEPATIC ENZYME ABNORMAL [None]
